FAERS Safety Report 6557911-0 (Version None)
Quarter: 2010Q1

REPORT INFORMATION
  Report Type: 
  Country: None (occurrence: None)
  Receive Date: 20100127
  Receipt Date: 20100127
  Transmission Date: 20100710
  Serious: Yes (Hospitalization)
  Sender: FDA-Public Use
  Company Number: None

PATIENT
  Age: 79 Year
  Sex: Female
  Weight: 71.9 kg

DRUGS (13)
  1. OMNIPAQUE 350 [Suspect]
     Indication: COMPUTERISED TOMOGRAM
     Dosage: 125 ML ONCE IV RECENT
     Route: 042
  2. FOLIC ACID [Concomitant]
  3. M.V.I. [Concomitant]
  4. CALCIUM W/D [Concomitant]
  5. COQ10 [Concomitant]
  6. VIT C [Concomitant]
  7. SYNTHROID [Concomitant]
  8. METFORMIN HCL [Concomitant]
  9. VIT B [Concomitant]
  10. DIGOXIN [Concomitant]
  11. GABAPENTIN [Concomitant]
  12. VICODIN [Concomitant]
  13. COUMADIN [Concomitant]

REACTIONS (6)
  - ANAEMIA [None]
  - BLOOD CREATINE INCREASED [None]
  - BLOOD UREA INCREASED [None]
  - CARDIAC FAILURE CONGESTIVE [None]
  - THERAPEUTIC RESPONSE INCREASED [None]
  - WOUND [None]
